FAERS Safety Report 15677061 (Version 1)
Quarter: 2018Q4

REPORT INFORMATION
  Report Type: Spontaneous
  Country: US (occurrence: US)
  Receive Date: 20181130
  Receipt Date: 20181130
  Transmission Date: 20190205
  Serious: No
  Sender: FDA-Public Use
  Company Number: US-PFIZER INC-2018489644

PATIENT
  Age: 53 Year
  Sex: Male

DRUGS (2)
  1. GENOTROPIN MQ [Suspect]
     Active Substance: SOMATROPIN
     Dosage: 0.4 MG, ALTERNATE DAY
  2. GENOTROPIN MQ [Suspect]
     Active Substance: SOMATROPIN
     Indication: BLOOD GROWTH HORMONE DECREASED
     Dosage: 0.4 MG, DAILY
     Dates: start: 20170425

REACTIONS (5)
  - Arthralgia [Recovered/Resolved]
  - Drug effect incomplete [Unknown]
  - Blood thyroid stimulating hormone decreased [Unknown]
  - Platelet count decreased [Unknown]
  - Blood glucose decreased [Unknown]

NARRATIVE: CASE EVENT DATE: 20171001
